FAERS Safety Report 8960972 (Version 2)
Quarter: 2013Q1

REPORT INFORMATION
  Report Type: Spontaneous
  Country: US (occurrence: US)
  Receive Date: 20121212
  Receipt Date: 20130225
  Transmission Date: 20140127
  Serious: No
  Sender: FDA-Public Use
  Company Number: US-ASTRAZENECA-2012SE90630

PATIENT
  Age: 63 Year
  Sex: Female
  Weight: 77.1 kg

DRUGS (5)
  1. ATACAND [Suspect]
     Indication: HYPERTENSION
     Route: 048
  2. ATACAND [Suspect]
     Indication: HYPERTENSION
     Route: 048
  3. OMEPRAZOLE [Suspect]
     Route: 048
  4. SERTRALINE [Concomitant]
     Indication: ANXIETY
  5. HYDROCHLOROTHIAZIDE [Concomitant]

REACTIONS (2)
  - Glossodynia [Recovered/Resolved]
  - Dyspepsia [Recovered/Resolved]
